FAERS Safety Report 24738821 (Version 1)
Quarter: 2024Q4

REPORT INFORMATION
  Report Type: Spontaneous
  Country: US (occurrence: US)
  Receive Date: 20241216
  Receipt Date: 20241216
  Transmission Date: 20250115
  Serious: Yes (Other)
  Sender: AMGEN
  Company Number: US-AMGEN-USASP2024244058

PATIENT

DRUGS (1)
  1. PREDNISONE [Suspect]
     Active Substance: PREDNISONE
     Indication: Graft versus host disease in gastrointestinal tract
     Dosage: UNK, PREDNISONE (PRED 0.5-2 MG/KG OR EQUIVALENT GLUCOCORTICOID DOSE
     Route: 065

REACTIONS (3)
  - Cytomegalovirus infection reactivation [Unknown]
  - Chronic graft versus host disease [Unknown]
  - Therapy partial responder [Unknown]
